FAERS Safety Report 6467503-X (Version None)
Quarter: 2009Q4

REPORT INFORMATION
  Report Type: 
  Country: None (occurrence: None)
  Receive Date: 20091130
  Receipt Date: 20091120
  Transmission Date: 20100525
  Serious: No
  Sender: FDA-Public Use
  Company Number: 20097686

PATIENT

DRUGS (1)
  1. LIORESAL [Suspect]
     Indication: MUSCLE SPASTICITY
     Dosage: 300.2 MCG, DAILY, INTRATHECAL
     Route: 037

REACTIONS (3)
  - IMPLANT SITE EFFUSION [None]
  - INFECTION [None]
  - WOUND DEHISCENCE [None]
